FAERS Safety Report 4557121-2 (Version None)
Quarter: 2005Q1

REPORT INFORMATION
  Report Type: 
  Country: None (occurrence: None)
  Receive Date: 20050118
  Receipt Date: 20050104
  Transmission Date: 20050727
  Serious: Yes (Life-Threatening)
  Sender: FDA-Public Use
  Company Number: GB-2004-035472

PATIENT
  Sex: Female

DRUGS (5)
  1. MIRENA [Suspect]
     Indication: MENORRHAGIA
     Dosage: 20 UG/DAY, CONT, INTRA-UTERINE
     Route: 015
     Dates: start: 20040909, end: 20041101
  2. VENLAFAXINE HCL [Concomitant]
  3. CO-CODAMOL (CODEINE PHOSPHATE) [Concomitant]
  4. BETAHISTINE [Concomitant]
  5. DANAZOL [Concomitant]

REACTIONS (3)
  - CONDITION AGGRAVATED [None]
  - DEPRESSION [None]
  - SUICIDAL IDEATION [None]
